FAERS Safety Report 9283656 (Version 11)
Quarter: 2014Q2

REPORT INFORMATION
  Report Type: Spontaneous
  Country: US (occurrence: US)
  Receive Date: 20130510
  Receipt Date: 20140603
  Transmission Date: 20141212
  Serious: Yes (Death, Hospitalization)
  Sender: FDA-Public Use
  Company Number: US-GLAXOSMITHKLINE-A0917029A

PATIENT
  Age: 63 Year
  Sex: Female

DRUGS (6)
  1. FLOLAN [Suspect]
     Indication: PULMONARY ARTERIAL HYPERTENSION
     Dosage: 38NGKM CONTINUOUS
     Route: 065
     Dates: start: 20010227
  2. TRACLEER [Concomitant]
  3. LASIX [Concomitant]
  4. ADCIRCA [Concomitant]
  5. WARFARIN [Concomitant]
  6. MULTIPLE MEDICATION [Concomitant]

REACTIONS (17)
  - Pulmonary hypertension [Fatal]
  - Skin discolouration [Unknown]
  - Rash macular [Unknown]
  - Malaise [Not Recovered/Not Resolved]
  - Dyspnoea [Recovered/Resolved]
  - Sinus disorder [Unknown]
  - Back pain [Unknown]
  - Epistaxis [Unknown]
  - Faecal incontinence [Unknown]
  - Therapy cessation [Unknown]
  - Hypotension [Unknown]
  - Mental status changes [Unknown]
  - Abdominal distension [Not Recovered/Not Resolved]
  - Oedema peripheral [Not Recovered/Not Resolved]
  - Pain [Unknown]
  - Heart rate increased [Not Recovered/Not Resolved]
  - Weight decreased [Not Recovered/Not Resolved]
